FAERS Safety Report 22321449 (Version 1)
Quarter: 2023Q2

REPORT INFORMATION
  Report Type: Spontaneous
  Country: GB (occurrence: None)
  Receive Date: 20230515
  Receipt Date: 20230515
  Transmission Date: 20230722
  Serious: Yes (Hospitalization)
  Sender: FDA-Public Use
  Company Number: 2023A110447

PATIENT
  Age: 80 Year
  Sex: Male

DRUGS (10)
  1. OMEPRAZOLE [Suspect]
     Active Substance: OMEPRAZOLE
     Indication: Barrett^s oesophagus
     Route: 048
     Dates: start: 2012
  2. ASPIRIN [Concomitant]
     Active Substance: ASPIRIN
  3. BISOPROLOL [Concomitant]
     Active Substance: BISOPROLOL
  4. DAPAGLIFLOZIN [Concomitant]
     Active Substance: DAPAGLIFLOZIN
  5. CO-BENELDOPA / LEVODOPA, [Concomitant]
  6. SACUBITRIL\VALSARTAN [Concomitant]
     Active Substance: SACUBITRIL\VALSARTAN
  7. EPLERENONE [Concomitant]
     Active Substance: EPLERENONE
  8. GLICLAZIDE [Concomitant]
     Active Substance: GLICLAZIDE
  9. ACETAMINOPHEN [Concomitant]
     Active Substance: ACETAMINOPHEN
  10. SIMVASTATIN [Concomitant]
     Active Substance: SIMVASTATIN

REACTIONS (3)
  - Electrolyte imbalance [Recovering/Resolving]
  - Diarrhoea [Recovering/Resolving]
  - Product use in unapproved indication [Unknown]

NARRATIVE: CASE EVENT DATE: 20230430
